FAERS Safety Report 22040808 (Version 1)
Quarter: 2023Q1

REPORT INFORMATION
  Report Type: Spontaneous
  Country: GB (occurrence: GB)
  Receive Date: 20230227
  Receipt Date: 20230227
  Transmission Date: 20230418
  Serious: Yes (Other)
  Sender: FDA-Public Use
  Company Number: None

PATIENT
  Age: 14 Year
  Sex: Male
  Weight: 63 kg

DRUGS (4)
  1. CLINDAMYCIN PHOSPHATE [Suspect]
     Active Substance: CLINDAMYCIN PHOSPHATE
     Dosage: 375 MG, FOUR TIMES A DAY
     Route: 042
     Dates: start: 20230217, end: 20230220
  2. CLINDAMYCIN PHOSPHATE [Suspect]
     Active Substance: CLINDAMYCIN PHOSPHATE
     Dosage: FIRST DOSE
     Route: 042
     Dates: start: 20230218
  3. CLINDAMYCIN PHOSPHATE [Suspect]
     Active Substance: CLINDAMYCIN PHOSPHATE
     Dosage: SECOND DOSE (AT MIDNIGHT)
     Route: 042
     Dates: start: 20230219
  4. CLINDAMYCIN PHOSPHATE [Suspect]
     Active Substance: CLINDAMYCIN PHOSPHATE
     Dosage: THIRD DOSE
     Route: 042
     Dates: start: 20230219

REACTIONS (8)
  - Agitation [Recovering/Resolving]
  - Feeling abnormal [Recovering/Resolving]
  - Mydriasis [Recovered/Resolved]
  - Fine motor skill dysfunction [Recovering/Resolving]
  - Dysarthria [Recovered/Resolved]
  - Pruritus [Recovering/Resolving]
  - Social avoidant behaviour [Recovering/Resolving]
  - Fatigue [Recovering/Resolving]

NARRATIVE: CASE EVENT DATE: 20230218
